FAERS Safety Report 4542915-X (Version None)
Quarter: 2004Q4

REPORT INFORMATION
  Report Type: 
  Country: None (occurrence: None)
  Receive Date: 20041229
  Receipt Date: 20041216
  Transmission Date: 20050328
  Serious: Yes (Death)
  Sender: FDA-Public Use
  Company Number: 2004117310

PATIENT
  Age: 44 Year
  Sex: Female

DRUGS (3)
  1. NEURONTIN [Suspect]
     Indication: ALCOHOLIC SEIZURE
  2. NEURONTIN [Suspect]
     Indication: BIPOLAR DISORDER
  3. NEURONTIN [Suspect]
     Indication: MOVEMENT DISORDER

REACTIONS (2)
  - COMPLETED SUICIDE [None]
  - DRUG INEFFECTIVE [None]
